FAERS Safety Report 4340367-6 (Version None)
Quarter: 2004Q2

REPORT INFORMATION
  Report Type: 
  Country: None (occurrence: None)
  Receive Date: 20040413
  Receipt Date: 20040326
  Transmission Date: 20050107
  Serious: Yes (Hospitalization)
  Sender: FDA-Public Use
  Company Number: 2004SA000066

PATIENT
  Age: 44 Year
  Sex: Female

DRUGS (4)
  1. THYMOGLOBULIN [Suspect]
     Dosage: 2.5 MG/KG; DAILY
     Dates: start: 20040310, end: 20040311
  2. CYTOXAN [Concomitant]
  3. FLUDARABINE PHOSPHATE [Concomitant]
  4. MESNA [Concomitant]

REACTIONS (3)
  - CARDIAC TAMPONADE [None]
  - DRUG INEFFECTIVE [None]
  - PLEURAL EFFUSION [None]
